FAERS Safety Report 13521973 (Version 1)
Quarter: 2017Q2

REPORT INFORMATION
  Report Type: Spontaneous
  Country: DE (occurrence: DE)
  Receive Date: 20170508
  Receipt Date: 20170508
  Transmission Date: 20170830
  Serious: Yes (Other)
  Sender: FDA-Public Use
  Company Number: DE-BAYER-2017-080824

PATIENT
  Age: 9 Year
  Sex: Male

DRUGS (1)
  1. ACETYLSALICYLIC ACID({=100 MG) [Suspect]
     Active Substance: ASPIRIN
     Indication: ANTIPLATELET THERAPY
     Dosage: 3MG/KG/D

REACTIONS (5)
  - Disturbance in attention [None]
  - Off label use [None]
  - Memory impairment [None]
  - Vasculitis [None]
  - Hemiparesis [None]
